FAERS Safety Report 13525310 (Version 1)
Quarter: 2017Q2

REPORT INFORMATION
  Report Type: Spontaneous
  Country: US (occurrence: US)
  Receive Date: 20170508
  Receipt Date: 20170508
  Transmission Date: 20170830
  Serious: No
  Sender: FDA-Public Use
  Company Number: US-ROCHE-1156922

PATIENT
  Sex: Male

DRUGS (1)
  1. AVASTIN [Suspect]
     Active Substance: BEVACIZUMAB
     Indication: PRODUCT USED FOR UNKNOWN INDICATION
     Dosage: 3 INJECTIONS
     Route: 065

REACTIONS (8)
  - Visual impairment [Unknown]
  - Colour blindness [Unknown]
  - Metamorphopsia [Unknown]
  - Pain [Unknown]
  - Intraocular pressure increased [Unknown]
  - Maculopathy [Unknown]
  - Angiopathy [Unknown]
  - Rhinorrhoea [Unknown]
